FAERS Safety Report 4588362-6 (Version None)
Quarter: 2005Q1

REPORT INFORMATION
  Report Type: 
  Country: None (occurrence: None)
  Receive Date: 20050222
  Receipt Date: 20050210
  Transmission Date: 20050727
  Serious: Yes (Death)
  Sender: FDA-Public Use
  Company Number: FR-JNJFOC-20050102302

PATIENT
  Sex: Male
  Weight: 80 kg

DRUGS (7)
  1. RISPERDAL [Suspect]
     Route: 049
  2. TERCIAN [Interacting]
     Indication: SCHIZOPHRENIA
  3. EFFEXOR [Suspect]
     Route: 049
  4. SULFARLEM [Suspect]
  5. IMOVANE [Concomitant]
  6. RIVOTRIL [Concomitant]
  7. LEPTICUR [Concomitant]

REACTIONS (5)
  - CARDIAC ARREST [None]
  - DRUG INTERACTION [None]
  - ELECTROCARDIOGRAM QT PROLONGED [None]
  - GASTROENTERITIS [None]
  - HYPOTENSION [None]
